FAERS Safety Report 6673534-7 (Version None)
Quarter: 2010Q2

REPORT INFORMATION
  Report Type: 
  Country: None (occurrence: None)
  Receive Date: 20100408
  Receipt Date: 20100405
  Transmission Date: 20101027
  Serious: Yes (Death, Other)
  Sender: FDA-Public Use
  Company Number: GB-SANOFI-AVENTIS-2010SA019444

PATIENT

DRUGS (2)
  1. OXALIPLATIN [Suspect]
     Route: 041
  2. CAPECITABINE [Suspect]
     Indication: RECTAL CANCER
     Route: 048

REACTIONS (21)
  - ANAEMIA [None]
  - ANGINA PECTORIS [None]
  - ARRHYTHMIA [None]
  - CARDIAC FAILURE [None]
  - CEREBROVASCULAR ACCIDENT [None]
  - DIARRHOEA [None]
  - GASTROINTESTINAL TOXICITY [None]
  - INFECTION [None]
  - INTESTINAL OBSTRUCTION [None]
  - INTESTINAL PERFORATION [None]
  - LETHARGY [None]
  - MYOCARDIAL INFARCTION [None]
  - NAUSEA [None]
  - NEUTROPENIA [None]
  - NEUTROPENIC SEPSIS [None]
  - PALMAR-PLANTAR ERYTHRODYSAESTHESIA SYNDROME [None]
  - PULMONARY EMBOLISM [None]
  - SKIN TOXICITY [None]
  - THROMBOCYTOPENIA [None]
  - URINARY TRACT DISORDER [None]
  - VOMITING [None]
